FAERS Safety Report 10103814 (Version 2)
Quarter: 2014Q2

REPORT INFORMATION
  Report Type: Other
  Country: US (occurrence: US)
  Receive Date: 20140424
  Receipt Date: 20140612
  Transmission Date: 20141212
  Serious: Yes (Death, Hospitalization, Other)
  Sender: FDA-Public Use
  Company Number: US-GSKPPD-2014GSK001476

PATIENT
  Age: 64 Year
  Sex: Female

DRUGS (2)
  1. AVANDIA [Suspect]
     Indication: DIABETES MELLITUS
     Dosage: AVANDIA WAS NOT LISTED AMONG THE PATIENTS ADMISSION DISCHARGE RECORDS.
     Route: 048
  2. ATENOLOL [Concomitant]
     Dates: start: 20010119

REACTIONS (4)
  - Myocardial infarction [None]
  - Cardiac failure congestive [Recovered/Resolved]
  - Cardiomyopathy [Recovered/Resolved]
  - Cardiovascular disorder [Fatal]
